FAERS Safety Report 8789160 (Version 1)
Quarter: 2012Q4

REPORT INFORMATION
  Report Type: Spontaneous
  Country: US (occurrence: None)
  Receive Date: 20120910
  Receipt Date: 20120910
  Transmission Date: 20130627
  Serious: Yes (Life-Threatening, Hospitalization)
  Sender: FDA-Public Use
  Company Number: None

PATIENT
  Age: 15 Year
  Sex: Female
  Weight: 45 kg

DRUGS (1)
  1. IBUPROFEN [Suspect]
     Dosage: ~1000mg/kg single dose oral
     Route: 048
     Dates: start: 20120810

REACTIONS (3)
  - Coma [None]
  - Hypotension [None]
  - Intentional overdose [None]
